FAERS Safety Report 11997273 (Version 1)
Quarter: 2016Q1

REPORT INFORMATION
  Report Type: Report from Study
  Country: US (occurrence: US)
  Receive Date: 20160203
  Receipt Date: 20160203
  Transmission Date: 20160526
  Serious: Yes (Hospitalization)
  Sender: FDA-Public Use
  Company Number: US-ABBVIE-15K-163-1414525-00

PATIENT
  Sex: Male

DRUGS (2)
  1. HUMIRA [Suspect]
     Active Substance: ADALIMUMAB
     Indication: CROHN^S DISEASE
     Route: 065
  2. PREDNISONE. [Suspect]
     Active Substance: PREDNISONE
     Indication: CROHN^S DISEASE
     Dosage: FOR 3 DAYS
     Route: 065

REACTIONS (4)
  - Rash macular [Not Recovered/Not Resolved]
  - Crohn^s disease [Recovered/Resolved]
  - Increased tendency to bruise [Not Recovered/Not Resolved]
  - Tremor [Not Recovered/Not Resolved]
